FAERS Safety Report 24671296 (Version 2)
Quarter: 2024Q4

REPORT INFORMATION
  Report Type: Spontaneous
  Country: CN (occurrence: CN)
  Receive Date: 20241127
  Receipt Date: 20241205
  Transmission Date: 20250115
  Serious: Yes (Hospitalization)
  Sender: NOVARTIS
  Company Number: CN-002147023-NVSC2024CN226283

PATIENT
  Age: 57 Year
  Sex: Female

DRUGS (1)
  1. EVEROLIMUS [Suspect]
     Active Substance: EVEROLIMUS
     Indication: Breast cancer
     Dosage: 10 MG, QD
     Route: 048
     Dates: start: 20241101, end: 20241112

REACTIONS (10)
  - Mouth ulceration [Recovering/Resolving]
  - Gingival swelling [Recovering/Resolving]
  - Pain [Unknown]
  - White blood cell count decreased [Recovering/Resolving]
  - Platelet count decreased [Unknown]
  - Procalcitonin increased [Unknown]
  - C-reactive protein increased [Unknown]
  - Red blood cell sedimentation rate increased [Unknown]
  - Neutrophil percentage increased [Unknown]
  - Pyrexia [Unknown]

NARRATIVE: CASE EVENT DATE: 20241109
